FAERS Safety Report 9734038 (Version 2)
Quarter: 2013Q4

REPORT INFORMATION
  Report Type: Report from Study
  Country: US (occurrence: US)
  Receive Date: 20131205
  Receipt Date: 20131205
  Transmission Date: 20140711
  Serious: Yes (Hospitalization, Other)
  Sender: FDA-Public Use
  Company Number: US-US-EMD SERONO, INC.-7213151

PATIENT
  Age: 60 Year
  Sex: Female
  Weight: 73 kg

DRUGS (7)
  1. REBIF [Suspect]
     Indication: MULTIPLE SCLEROSIS
     Route: 058
     Dates: start: 2011, end: 201211
  2. REBIF [Suspect]
     Route: 058
     Dates: start: 20130107
  3. SIMVASTATIN [Concomitant]
     Indication: BLOOD CHOLESTEROL INCREASED
  4. LOTREL                             /01289101/ [Concomitant]
     Indication: HYPERTENSION
  5. QUESTRAN [Concomitant]
     Indication: DIARRHOEA
  6. SYNTHROID [Concomitant]
     Indication: THYROID DISORDER
  7. ALPRAZOLAM [Concomitant]
     Indication: PRODUCT USED FOR UNKNOWN INDICATION

REACTIONS (8)
  - Dyskinesia oesophageal [Recovered/Resolved]
  - Cholecystitis [Recovered/Resolved]
  - Gastritis erosive [Recovering/Resolving]
  - Gastrooesophageal reflux disease [Unknown]
  - Irritable bowel syndrome [Recovering/Resolving]
  - Fatigue [Not Recovered/Not Resolved]
  - Fatigue [Not Recovered/Not Resolved]
  - Injection site erythema [Not Recovered/Not Resolved]
